FAERS Safety Report 7127746-9 (Version None)
Quarter: 2010Q4

REPORT INFORMATION
  Report Type: 
  Country: None (occurrence: None)
  Receive Date: 20101130
  Receipt Date: 20101117
  Transmission Date: 20110411
  Serious: No
  Sender: FDA-Public Use
  Company Number: US-BIOGENIDEC-2010BI040904

PATIENT
  Age: 33 Year
  Sex: Female

DRUGS (4)
  1. TYSABRI [Suspect]
     Indication: MULTIPLE SCLEROSIS
     Route: 042
     Dates: start: 20100630
  2. AVONEX [Concomitant]
     Indication: MULTIPLE SCLEROSIS
     Route: 030
     Dates: start: 20090624
  3. AVONEX [Concomitant]
     Route: 030
     Dates: start: 20040519, end: 20090415
  4. AVONEX [Concomitant]
     Route: 030
     Dates: start: 20100601

REACTIONS (2)
  - HYPOTHYROIDISM [None]
  - SINUSITIS [None]
